FAERS Safety Report 4911715-0 (Version None)
Quarter: 2006Q1

REPORT INFORMATION
  Report Type: 
  Country: None (occurrence: None)
  Receive Date: 20060213
  Receipt Date: 20060201
  Transmission Date: 20060701
  Serious: No
  Sender: FDA-Public Use
  Company Number: A119648

PATIENT
  Age: 65 Year
  Sex: Male
  Weight: 88.4514 kg

DRUGS (4)
  1. VIAGRA [Suspect]
     Indication: ERECTILE DYSFUNCTION
     Dosage: 50 MG (PRN), ORAL
     Route: 048
     Dates: start: 20000101, end: 20010701
  2. TELMISARTAN (TELMISARTAN) [Concomitant]
  3. COVERA-HS [Concomitant]
  4. ALEVE [Concomitant]

REACTIONS (6)
  - HAEMATURIA [None]
  - MUSCLE RUPTURE [None]
  - PENILE HAEMORRHAGE [None]
  - PENIS DISORDER [None]
  - PEYRONIE'S DISEASE [None]
  - THERAPY NON-RESPONDER [None]
